FAERS Safety Report 9473588 (Version 2)
Quarter: 2013Q3

REPORT INFORMATION
  Report Type: Spontaneous
  Country: US (occurrence: US)
  Receive Date: 20130823
  Receipt Date: 20130823
  Transmission Date: 20140515
  Serious: Yes (Other)
  Sender: FDA-Public Use
  Company Number: US-BRISTOL-MYERS SQUIBB COMPANY-16063422

PATIENT
  Age: 61 Year
  Sex: Female
  Weight: 81 kg

DRUGS (5)
  1. SPRYCEL [Suspect]
     Indication: CHRONIC MYELOID LEUKAEMIA
     Dosage: RESTARTED ON 20MAY12 AGAIN IT IS RESTART ON 21JAN13 AT 70MG
     Route: 048
     Dates: start: 20110201
  2. SIMVASTATIN [Concomitant]
  3. LEVOTHYROXINE [Concomitant]
  4. MONTELUKAST [Concomitant]
  5. ZOLPIDEM [Concomitant]

REACTIONS (3)
  - Atypical pneumonia [Not Recovered/Not Resolved]
  - Dermatitis [Unknown]
  - Pleural effusion [Not Recovered/Not Resolved]
